FAERS Safety Report 8139230-4 (Version None)
Quarter: 2012Q1

REPORT INFORMATION
  Report Type: 
  Country: None (occurrence: None)
  Receive Date: 20120215
  Receipt Date: 20120213
  Transmission Date: 20120608
  Serious: Yes (Hospitalization, Other)
  Sender: FDA-Public Use
  Company Number: VE-PFIZER INC-2011309819

PATIENT
  Age: 54 Year
  Sex: Female

DRUGS (5)
  1. LIPITOR [Suspect]
     Indication: HYPERCHOLESTEROLAEMIA
     Dosage: 40 MG, UNK
     Route: 048
     Dates: start: 20111201, end: 20111201
  2. GALVUS [Concomitant]
     Indication: DIABETES MELLITUS
     Dosage: UNK
     Route: 048
     Dates: start: 20110101, end: 20120101
  3. HIPERLIPEN [Concomitant]
     Dosage: 100 MG, UNK
     Route: 048
     Dates: start: 20110101
  4. INSULIN [Concomitant]
     Indication: DIABETES MELLITUS
     Dosage: 70/30 IU
  5. LIPITOR [Suspect]
     Dosage: 40 MG, UNK
     Route: 048
     Dates: start: 20120210

REACTIONS (3)
  - HYPERGLYCAEMIA [None]
  - RETINOPATHY [None]
  - BACK PAIN [None]
